FAERS Safety Report 7017993-9 (Version None)
Quarter: 2010Q3

REPORT INFORMATION
  Report Type: 
  Country: None (occurrence: None)
  Receive Date: 20100928
  Receipt Date: 20100913
  Transmission Date: 20110219
  Serious: Yes (Hospitalization, Other)
  Sender: FDA-Public Use
  Company Number: PHHY2010US63441

PATIENT
  Sex: Female

DRUGS (4)
  1. VALTURNA [Suspect]
     Dosage: 150/160 MG PER DAY
     Route: 048
  2. VALTURNA [Suspect]
     Dosage: 300/320 MG PER DAY
     Route: 048
  3. LORATADINE [Concomitant]
     Indication: HYPERSENSITIVITY
     Dosage: 10 MG
  4. ASTHMA MEDICATION [Concomitant]

REACTIONS (5)
  - BLOOD PRESSURE INCREASED [None]
  - CHEST PAIN [None]
  - MYOCARDIAL INFARCTION [None]
  - STRESS [None]
  - THROAT TIGHTNESS [None]
